FAERS Safety Report 9321403 (Version 2)
Quarter: 2013Q2

REPORT INFORMATION
  Report Type: Spontaneous
  Country: GB (occurrence: None)
  Receive Date: 20130528
  Receipt Date: 20130604
  Transmission Date: 20140414
  Serious: Yes (Hospitalization, Other)
  Sender: FDA-Public Use
  Company Number: AUR-APL-2013-04147

PATIENT
  Age: 54 Year
  Sex: Male
  Weight: 79.4 kg

DRUGS (1)
  1. RAMIPRIL [Suspect]
     Indication: HYPERTENSION
     Dosage: (50 MG, 1 IN 1 D)
     Dates: start: 2002, end: 2013

REACTIONS (51)
  - Bruxism [None]
  - Musculoskeletal stiffness [None]
  - Spinal fracture [None]
  - Arthritis [None]
  - Back pain [None]
  - Dyskinesia [None]
  - Nausea [None]
  - Foreign body sensation in eyes [None]
  - Presyncope [None]
  - Skin discolouration [None]
  - Movement disorder [None]
  - Vision blurred [None]
  - Gastric disorder [None]
  - Muscle spasms [None]
  - Influenza [None]
  - Headache [None]
  - Hyperacusis [None]
  - Drug dose omission [None]
  - Dyskinesia [None]
  - Feeling abnormal [None]
  - Gout [None]
  - Pain [None]
  - Rheumatic disorder [None]
  - Paraesthesia [None]
  - Tooth fracture [None]
  - Nightmare [None]
  - Dysgeusia [None]
  - Arthropathy [None]
  - Hypophagia [None]
  - Malaise [None]
  - Mental disorder [None]
  - Musculoskeletal stiffness [None]
  - Musculoskeletal stiffness [None]
  - Rhinorrhoea [None]
  - Asthma [None]
  - Scab [None]
  - Ear pain [None]
  - Depressed level of consciousness [None]
  - Blindness transient [None]
  - Dysphagia [None]
  - Memory impairment [None]
  - Hypochondriasis [None]
  - Stress [None]
  - Depression [None]
  - Tachyphrenia [None]
  - Oral discharge [None]
  - Vomiting [None]
  - Marital problem [None]
  - Loss of employment [None]
  - Anger [None]
  - Erythema [None]
